FAERS Safety Report 12203281 (Version 1)
Quarter: 2016Q1

REPORT INFORMATION
  Report Type: Spontaneous
  Country: US (occurrence: None)
  Receive Date: 20160321
  Receipt Date: 20160321
  Transmission Date: 20160526
  Serious: Yes (Hospitalization)
  Sender: FDA-Public Use
  Company Number: None

PATIENT
  Sex: Female
  Weight: 64 kg

DRUGS (2)
  1. NTG HYDRO BOOST GEL CREAM EYE [Suspect]
     Active Substance: COSMETICS
     Route: 061
  2. NEUTROGENA AGELESS INTENSIVES ANTI WRINKLE DEEP WRINKLE DAILY MOISTUR SUNS SPF20 [Suspect]
     Active Substance: AVOBENZONE\HOMOSALATE\OCTISALATE\OCTOCRYLENE\OXYBENZONE
     Route: 061

REACTIONS (3)
  - Somnolence [None]
  - Hypersensitivity [None]
  - Application site discolouration [None]
